FAERS Safety Report 9013089 (Version 3)
Quarter: 2014Q3

REPORT INFORMATION
  Report Type: Spontaneous
  Country: FR (occurrence: FR)
  Receive Date: 20130114
  Receipt Date: 20140827
  Transmission Date: 20150326
  Serious: Yes (Disabling, Other)
  Sender: FDA-Public Use
  Company Number: FR-ASTELLAS-2013EU000189

PATIENT
  Sex: Male

DRUGS (4)
  1. AERIUS [Concomitant]
     Active Substance: DESLORATADINE
     Indication: PRODUCT USED FOR UNKNOWN INDICATION
     Route: 048
  2. PROTOPIC [Suspect]
     Active Substance: TACROLIMUS
     Indication: DERMATITIS ATOPIC
     Dosage: 0.1 %, OTHER
     Route: 061
     Dates: start: 2004
  3. DERMOVAL                           /00008501/ [Concomitant]
     Indication: PRODUCT USED FOR UNKNOWN INDICATION
     Route: 061
  4. PROTOPIC [Suspect]
     Active Substance: TACROLIMUS
     Dosage: 0.1 %, ONCE DAILY
     Route: 061
     Dates: end: 201212

REACTIONS (4)
  - Drug ineffective [Unknown]
  - Herpes ophthalmic [Recovered/Resolved]
  - Ophthalmic herpes simplex [Recovered/Resolved with Sequelae]
  - Intentional product misuse [Unknown]

NARRATIVE: CASE EVENT DATE: 2011
